FAERS Safety Report 8252414-X (Version None)
Quarter: 2012Q2

REPORT INFORMATION
  Report Type: 
  Country: None (occurrence: None)
  Receive Date: 20120402
  Receipt Date: 20110711
  Transmission Date: 20120825
  Serious: No
  Sender: FDA-Public Use
  Company Number: US-ABBOTT-11P-163-0837679-00

PATIENT
  Sex: Male
  Weight: 73.548 kg

DRUGS (12)
  1. UNKNOWN EYE DROPS [Concomitant]
     Indication: GLAUCOMA
     Route: 047
  2. PREDNISONE TAB [Concomitant]
     Indication: ASTHMA
     Route: 048
  3. LOSARTAN POTASSIUM [Concomitant]
     Indication: HYPERTENSION
     Route: 048
  4. METFORMIN HCL [Concomitant]
     Indication: DIABETES MELLITUS
     Route: 048
  5. DEXILANT [Concomitant]
     Indication: GASTROOESOPHAGEAL REFLUX DISEASE
     Route: 048
  6. ALENDRONATE SODIUM [Concomitant]
     Indication: OSTEOPOROSIS
  7. ANDROGEL [Suspect]
     Indication: BLOOD TESTOSTERONE DECREASED
     Route: 062
     Dates: start: 20090901, end: 20110501
  8. SINGULAIR [Concomitant]
     Indication: ASTHMA
     Route: 048
  9. SIMVASTATIN [Concomitant]
     Indication: BLOOD CHOLESTEROL INCREASED
     Route: 048
  10. SYMBICORT [Concomitant]
     Indication: ASTHMA
     Dosage: 2 IN 1 D, AS REQUIRED
     Route: 055
  11. UNKNOWN INSULIN [Concomitant]
     Indication: DIABETES MELLITUS
     Dosage: PER SLIDING SCALE AS NEEDED
     Route: 058
  12. UNKNOWN EYE DROPS [Concomitant]
     Indication: CATARACT
     Route: 047

REACTIONS (1)
  - GYNAECOMASTIA [None]
